FAERS Safety Report 13738645 (Version 1)
Quarter: 2017Q3

REPORT INFORMATION
  Report Type: Spontaneous
  Country: US (occurrence: US)
  Receive Date: 20170710
  Receipt Date: 20170710
  Transmission Date: 20171127
  Serious: Yes (Other)
  Sender: FDA-Public Use
  Company Number: US-SAOL THERAPEUTICS-2017SAO00125

PATIENT
  Sex: Male

DRUGS (11)
  1. BACLOFEN. [Suspect]
     Active Substance: BACLOFEN
     Indication: MULTIPLE SCLEROSIS
  2. BACLOFEN. [Suspect]
     Active Substance: BACLOFEN
     Indication: PAIN
  3. BACLOFEN. [Suspect]
     Active Substance: BACLOFEN
     Indication: SPINAL CORD INJURY
  4. BACLOFEN. [Suspect]
     Active Substance: BACLOFEN
     Indication: MUSCLE SPASTICITY
  5. BACLOFEN. [Suspect]
     Active Substance: BACLOFEN
     Indication: ARACHNOIDITIS
  6. BACLOFEN. [Suspect]
     Active Substance: BACLOFEN
     Indication: NEUROPATHY PERIPHERAL
  7. BACLOFEN. [Suspect]
     Active Substance: BACLOFEN
     Indication: ARTHRITIS
  8. BACLOFEN. [Suspect]
     Active Substance: BACLOFEN
     Indication: CEREBRAL PALSY
  9. BACLOFEN. [Suspect]
     Active Substance: BACLOFEN
     Indication: HEAD INJURY
  10. BACLOFEN. [Suspect]
     Active Substance: BACLOFEN
     Indication: PANCREATITIS
     Route: 037
  11. BACLOFEN. [Suspect]
     Active Substance: BACLOFEN
     Indication: POST LAMINECTOMY SYNDROME

REACTIONS (2)
  - Implant site infection [Recovered/Resolved]
  - Implant site dehiscence [Recovered/Resolved]
